FAERS Safety Report 7435429-0 (Version None)
Quarter: 2011Q2

REPORT INFORMATION
  Report Type: 
  Country: None (occurrence: None)
  Receive Date: 20110425
  Receipt Date: 20110420
  Transmission Date: 20111010
  Serious: Yes (Hospitalization)
  Sender: FDA-Public Use
  Company Number: FR-MERCK-1104FRA00116

PATIENT
  Age: 61 Year
  Sex: Male

DRUGS (6)
  1. VYTORIN [Suspect]
     Route: 048
     Dates: start: 20091001, end: 20100501
  2. FLUINDIONE [Suspect]
     Route: 048
     Dates: start: 20080101
  3. ASPIRIN LYSINE [Suspect]
     Route: 048
     Dates: start: 20080101
  4. CARVEDILOL [Suspect]
     Route: 048
     Dates: start: 20081001
  5. RABEPRAZOLE SODIUM [Suspect]
     Route: 048
     Dates: start: 20040101
  6. PERINDOPRIL ARGININE [Suspect]
     Route: 048
     Dates: start: 20081001

REACTIONS (1)
  - DERMATITIS PSORIASIFORM [None]
